FAERS Safety Report 17784344 (Version 1)
Quarter: 2020Q2

REPORT INFORMATION
  Report Type: Spontaneous
  Country: ES (occurrence: ES)
  Receive Date: 20200513
  Receipt Date: 20200513
  Transmission Date: 20200714
  Serious: Yes (Hospitalization, Other)
  Sender: FDA-Public Use
  Company Number: GXKR2003ES03272

PATIENT
  Age: 59 Year
  Sex: Female

DRUGS (2)
  1. DOXIUM [Concomitant]
     Active Substance: CALCIUM DOBESILATE
     Indication: PRODUCT USED FOR UNKNOWN INDICATION
     Dosage: UNK
     Route: 065
  2. IBUPROFEN. [Suspect]
     Active Substance: IBUPROFEN
     Indication: ARTHRALGIA
     Dosage: 1800 MG, QD
     Route: 048

REACTIONS (3)
  - Drug-induced liver injury [Recovered/Resolved with Sequelae]
  - Hepatic failure [Unknown]
  - Renal impairment [Unknown]
